FAERS Safety Report 10592815 (Version 9)
Quarter: 2015Q3

REPORT INFORMATION
  Report Type: Report from Study
  Country: US (occurrence: US)
  Receive Date: 20141119
  Receipt Date: 20150925
  Transmission Date: 20151125
  Serious: Yes (Death, Hospitalization)
  Sender: FDA-Public Use
  Company Number: US-ROCHE-1481143

PATIENT
  Age: 46 Year
  Sex: Female
  Weight: 49.94 kg

DRUGS (16)
  1. LEVOFLOXACIN. [Concomitant]
     Active Substance: LEVOFLOXACIN
  2. DOCUSATE [Concomitant]
     Active Substance: DOCUSATE
  3. MILK OF MAGNESIA [Concomitant]
     Active Substance: MAGNESIUM HYDROXIDE
  4. ETHAMBUTOL [Concomitant]
     Active Substance: ETHAMBUTOL HYDROCHLORIDE
     Route: 065
  5. AZITHROMYCIN [Concomitant]
     Active Substance: AZITHROMYCIN ANHYDROUS
     Route: 065
  6. PANTOPRAZOLE [Concomitant]
     Active Substance: PANTOPRAZOLE SODIUM
  7. ALBUTEROL. [Concomitant]
     Active Substance: ALBUTEROL
  8. DUONEB [Concomitant]
     Active Substance: ALBUTEROL SULFATE\IPRATROPIUM BROMIDE
  9. TRASTUZUMAB EMTANSINE [Suspect]
     Active Substance: ADO-TRASTUZUMAB EMTANSINE
     Indication: BREAST CANCER
     Route: 065
  10. MEROPENEM. [Concomitant]
     Active Substance: MEROPENEM
  11. DULCOLAX (BISACODYL) [Concomitant]
     Active Substance: BISACODYL
  12. PULMICORT TURBUHALER [Concomitant]
     Active Substance: BUDESONIDE
  13. BROVANA [Concomitant]
     Active Substance: ARFORMOTEROL TARTRATE
  14. VANCOMYCIN [Concomitant]
     Active Substance: VANCOMYCIN
  15. LASIX [Concomitant]
     Active Substance: FUROSEMIDE
  16. RIFAMPIN. [Concomitant]
     Active Substance: RIFAMPIN
     Route: 065

REACTIONS (9)
  - Pancytopenia [Fatal]
  - Abdominal pain [Not Recovered/Not Resolved]
  - Acute respiratory failure [Recovered/Resolved]
  - Constipation [Recovered/Resolved]
  - Granuloma [Not Recovered/Not Resolved]
  - Mycobacterium avium complex infection [Fatal]
  - Nephrolithiasis [Recovered/Resolved]
  - Respiratory failure [Fatal]
  - Hypoxia [Recovered/Resolved]

NARRATIVE: CASE EVENT DATE: 20141024
